FAERS Safety Report 7514421-1 (Version None)
Quarter: 2011Q2

REPORT INFORMATION
  Report Type: 
  Country: None (occurrence: None)
  Receive Date: 20110601
  Receipt Date: 20110517
  Transmission Date: 20111010
  Serious: Yes (Other)
  Sender: FDA-Public Use
  Company Number: HR-RANBAXY-2011RR-44298

PATIENT
  Age: 60 Year
  Sex: Male

DRUGS (5)
  1. LOSARTAN POTASSIUM [Concomitant]
     Dosage: 50 MG/DAY
  2. BISOPROLOL FUMARATE [Concomitant]
     Dosage: 2.5 MG/DAY
  3. PANTOPRAZOLE [Concomitant]
     Dosage: 40 MG/DAY
  4. MELOXICAM [Suspect]
     Indication: OSTEOARTHRITIS
     Dosage: 15 MG, UNK
  5. ATORVASTATIN [Concomitant]
     Dosage: 20 MG/DAY

REACTIONS (1)
  - NEPHROTIC SYNDROME [None]
